FAERS Safety Report 5319343-2 (Version None)
Quarter: 2007Q2

REPORT INFORMATION
  Report Type: 
  Country: None (occurrence: None)
  Receive Date: 20070508
  Receipt Date: 20070427
  Transmission Date: 20071010
  Serious: Yes (Death, Hospitalization)
  Sender: FDA-Public Use
  Company Number: GB-PFIZER INC-2007012337

PATIENT
  Sex: Male
  Weight: 80 kg

DRUGS (5)
  1. DOFETILIDE [Suspect]
     Indication: ARRHYTHMIA
     Route: 048
  2. METOPROLOL SUCCINATE [Concomitant]
     Route: 048
  3. WARFARIN SODIUM [Concomitant]
     Dates: start: 20010101
  4. LAMOTRIGINE [Concomitant]
     Route: 048
  5. TEMAZEPAM [Concomitant]
     Route: 048

REACTIONS (10)
  - ACUTE LEFT VENTRICULAR FAILURE [None]
  - ARRHYTHMIA [None]
  - ATRIAL FIBRILLATION [None]
  - ATRIAL FLUTTER [None]
  - CHEST PAIN [None]
  - CONDITION AGGRAVATED [None]
  - OSTEONECROSIS [None]
  - PULMONARY CONGESTION [None]
  - PULMONARY OEDEMA [None]
  - PULMONARY SARCOIDOSIS [None]
